FAERS Safety Report 23200443 (Version 1)
Quarter: 2023Q4

REPORT INFORMATION
  Report Type: Spontaneous
  Country: US (occurrence: US)
  Receive Date: 20231118
  Receipt Date: 20231118
  Transmission Date: 20240110
  Serious: No
  Sender: FDA-Public Use
  Company Number: US-SA-SAC20231113000635

PATIENT
  Age: 52 Year
  Sex: Female
  Weight: 104.3 kg

DRUGS (16)
  1. DUPIXENT [Suspect]
     Active Substance: DUPILUMAB
     Indication: Dermatitis atopic
     Dosage: 300MG EVERY 2 WEEKS
     Route: 058
     Dates: start: 20230925
  2. MINOCYCLINE HYDROCHLORIDE [Suspect]
     Active Substance: MINOCYCLINE HYDROCHLORIDE
  3. LISINOPRIL [Concomitant]
     Active Substance: LISINOPRIL
  4. CALCIUM [Concomitant]
     Active Substance: CALCIUM
  5. VITAMINS NOS [Concomitant]
     Active Substance: VITAMINS
  6. CLOBETASOL PROPIONATE [Concomitant]
     Active Substance: CLOBETASOL PROPIONATE
  7. MUPIROCIN [Concomitant]
     Active Substance: MUPIROCIN
  8. TRIAMCINOLONE ACETONIDE [Concomitant]
     Active Substance: TRIAMCINOLONE ACETONIDE
  9. BENZOYL PEROXIDE\CLINDAMYCIN PHOSPHATE [Concomitant]
     Active Substance: BENZOYL PEROXIDE\CLINDAMYCIN PHOSPHATE
  10. IBUPROFEN [Concomitant]
     Active Substance: IBUPROFEN
  11. TYLENOL [Concomitant]
     Active Substance: ACETAMINOPHEN
  12. DORZOLAMIDE [Concomitant]
     Active Substance: DORZOLAMIDE
  13. HYDROCHLOROTHIAZIDE [Concomitant]
     Active Substance: HYDROCHLOROTHIAZIDE
  14. EPIPEN [Concomitant]
     Active Substance: EPINEPHRINE
  15. ASPIRIN [Concomitant]
     Active Substance: ASPIRIN
  16. SYSTANE (HYPROMELLOSE 2910 (4000 MPA.S)) [Concomitant]
     Active Substance: HYPROMELLOSE 2910 (4000 MPA.S)

REACTIONS (3)
  - Skin swelling [Unknown]
  - Skin ulcer [Recovering/Resolving]
  - Pruritus [Not Recovered/Not Resolved]
